FAERS Safety Report 13390693 (Version 1)
Quarter: 2017Q1

REPORT INFORMATION
  Report Type: Report from Study
  Country: IN (occurrence: IN)
  Receive Date: 20170331
  Receipt Date: 20170331
  Transmission Date: 20170429
  Serious: Yes (Death, Hospitalization)
  Sender: FDA-Public Use
  Company Number: PHHY2017IN047829

PATIENT
  Age: 61 Year
  Sex: Female

DRUGS (2)
  1. TYKERB [Suspect]
     Active Substance: LAPATINIB DITOSYLATE
     Indication: BREAST CANCER
     Dosage: 1250 MG, QD
     Route: 048
     Dates: start: 20150917, end: 20170323
  2. HERCEPTIN [Suspect]
     Active Substance: TRASTUZUMAB
     Indication: HUMAN EPIDERMAL GROWTH FACTOR RECEPTOR INCREASED
     Dosage: UNK (18 CYCLES)
     Route: 065
     Dates: start: 20140729, end: 20150718

REACTIONS (5)
  - Metastases to liver [Fatal]
  - Cardiac arrest [Fatal]
  - Ascites [Fatal]
  - Coma hepatic [Fatal]
  - Jaundice cholestatic [Fatal]

NARRATIVE: CASE EVENT DATE: 20170324
